FAERS Safety Report 8539822-4 (Version None)
Quarter: 2012Q3

REPORT INFORMATION
  Report Type: 
  Country: None (occurrence: None)
  Receive Date: 20120726
  Receipt Date: 20120718
  Transmission Date: 20120928
  Serious: Yes (Hospitalization, Other)
  Sender: FDA-Public Use
  Company Number: US-ASTRAZENECA-2012SE44670

PATIENT
  Age: 54 Year
  Sex: Female

DRUGS (2)
  1. SYMBICORT [Suspect]
     Dosage: UNKNOWN FREQUENCY
     Route: 055
  2. CRESTOR [Suspect]
     Route: 048

REACTIONS (4)
  - CHRONIC OBSTRUCTIVE PULMONARY DISEASE [None]
  - MYOCARDIAL INFARCTION [None]
  - DRUG DOSE OMISSION [None]
  - ASTHMA [None]
